FAERS Safety Report 7797153-4 (Version None)
Quarter: 2011Q4

REPORT INFORMATION
  Report Type: 
  Country: None (occurrence: None)
  Receive Date: 20111005
  Receipt Date: 20110922
  Transmission Date: 20120403
  Serious: Yes (Other)
  Sender: FDA-Public Use
  Company Number: BR-RANBAXY-2011R5-48691

PATIENT

DRUGS (4)
  1. IBUPROFEN [Suspect]
     Indication: HEADACHE
  2. DIANE-35 [Concomitant]
     Indication: PRODUCT USED FOR UNKNOWN INDICATION
     Dosage: UNK,QD
     Route: 065
  3. IBUPROFEN [Suspect]
     Indication: PYREXIA
     Dosage: UNK, UNK
     Route: 048
  4. MINOCYCLINE HCL [Suspect]
     Indication: BACTERIAL INFECTION
     Dosage: 100 MG, QD
     Route: 048
     Dates: start: 20110914, end: 20110922

REACTIONS (12)
  - HEADACHE [None]
  - BACK PAIN [None]
  - BURNING SENSATION [None]
  - ERYTHEMA [None]
  - LIP SWELLING [None]
  - PYREXIA [None]
  - NAUSEA [None]
  - VISION BLURRED [None]
  - VOMITING [None]
  - NECK PAIN [None]
  - CHILLS [None]
  - PAIN [None]
